FAERS Safety Report 19307861 (Version 6)
Quarter: 2021Q4

REPORT INFORMATION
  Report Type: Report from Study
  Country: US (occurrence: US)
  Receive Date: 20210526
  Receipt Date: 20211020
  Transmission Date: 20220303
  Serious: No
  Sender: FDA-Public Use
  Company Number: NVSC2021US110242

PATIENT
  Age: 50 Year
  Sex: Male

DRUGS (9)
  1. BEOVU [Suspect]
     Active Substance: BROLUCIZUMAB-DBLL
     Indication: Neovascular age-related macular degeneration
     Dosage: UNK (IN RIGHT EYE)
     Route: 047
     Dates: start: 20210405
  2. BEOVU [Suspect]
     Active Substance: BROLUCIZUMAB-DBLL
     Dosage: UNK (IN LEFT EYE)
     Route: 047
     Dates: start: 20210510
  3. BEOVU [Suspect]
     Active Substance: BROLUCIZUMAB-DBLL
     Dosage: UNK (LEFT EYE)
     Route: 047
     Dates: start: 20210719
  4. TROPICAMIDE [Concomitant]
     Active Substance: TROPICAMIDE
     Indication: Product used for unknown indication
     Dosage: EYE: OU
     Route: 065
     Dates: start: 20210405
  5. TROPICAMIDE [Concomitant]
     Active Substance: TROPICAMIDE
     Dosage: EYE: OU
     Route: 065
     Dates: start: 20210510
  6. TROPICAMIDE [Concomitant]
     Active Substance: TROPICAMIDE
     Dosage: EYE: OU
     Route: 065
     Dates: start: 20210907
  7. PHENYLEPHRINE [Concomitant]
     Active Substance: PHENYLEPHRINE HYDROCHLORIDE
     Indication: Product used for unknown indication
     Dosage: EYE: OU
     Route: 065
     Dates: start: 20210405
  8. PHENYLEPHRINE [Concomitant]
     Active Substance: PHENYLEPHRINE HYDROCHLORIDE
     Dosage: EYE: OU
     Route: 065
     Dates: start: 20210510
  9. PHENYLEPHRINE [Concomitant]
     Active Substance: PHENYLEPHRINE HYDROCHLORIDE
     Dosage: EYE: OU
     Route: 065
     Dates: start: 20210907

REACTIONS (3)
  - Eye injury [Unknown]
  - Visual impairment [Not Recovered/Not Resolved]
  - Inappropriate schedule of product administration [Unknown]

NARRATIVE: CASE EVENT DATE: 20210511
